FAERS Safety Report 10250695 (Version 2)
Quarter: 2014Q3

REPORT INFORMATION
  Report Type: Spontaneous
  Country: US (occurrence: US)
  Receive Date: 20140620
  Receipt Date: 20140703
  Transmission Date: 20150326
  Serious: No
  Sender: FDA-Public Use
  Company Number: US-009507513-1406USA004011

PATIENT
  Age: 37 Year
  Sex: Female

DRUGS (1)
  1. PROVENTIL [Suspect]
     Active Substance: ALBUTEROL
     Indication: RESPIRATORY DISORDER
     Dosage: 90 MCG (1 STANDARD DOSE OF 6.7), UNK
     Route: 055

REACTIONS (5)
  - Dysgeusia [Unknown]
  - Exposure during pregnancy [Unknown]
  - Product taste abnormal [Unknown]
  - Product odour abnormal [Unknown]
  - Parosmia [Unknown]

NARRATIVE: CASE EVENT DATE: 20140605
